FAERS Safety Report 6326060-9 (Version None)
Quarter: 2009Q3

REPORT INFORMATION
  Report Type: 
  Country: None (occurrence: None)
  Receive Date: 20090824
  Receipt Date: 20090817
  Transmission Date: 20100115
  Serious: Yes (Hospitalization)
  Sender: FDA-Public Use
  Company Number: SI-TEVA-206232ISR

PATIENT
  Age: 41 Year
  Sex: Female

DRUGS (3)
  1. CISPLATIN [Suspect]
     Indication: METASTATIC MALIGNANT MELANOMA
     Route: 042
     Dates: start: 20070601
  2. VINBLASTINE [Suspect]
     Dates: start: 20070601
  3. LOMUSTINE [Concomitant]
     Route: 048
     Dates: start: 20070601

REACTIONS (1)
  - REVERSIBLE POSTERIOR LEUKOENCEPHALOPATHY SYNDROME [None]
